FAERS Safety Report 23819234 (Version 1)
Quarter: 2024Q2

REPORT INFORMATION
  Report Type: Other
  Country: IN (occurrence: None)
  Receive Date: 20240506
  Receipt Date: 20240506
  Transmission Date: 20240715
  Serious: Yes (Other)
  Sender: FDA-Public Use
  Company Number: IN-ROCHE-3555069

PATIENT
  Age: 68 Year
  Sex: Female

DRUGS (1)
  1. POLIVY [Suspect]
     Active Substance: POLATUZUMAB VEDOTIN-PIIQ
     Indication: B-cell lymphoma recurrent
     Route: 042
     Dates: start: 20240210

REACTIONS (2)
  - Swelling [Unknown]
  - Pulmonary oedema [Unknown]
